FAERS Safety Report 23053436 (Version 3)
Quarter: 2024Q1

REPORT INFORMATION
  Report Type: Spontaneous
  Country: JP (occurrence: JP)
  Receive Date: 20231011
  Receipt Date: 20240125
  Transmission Date: 20240410
  Serious: Yes (Death, Other)
  Sender: FDA-Public Use
  Company Number: JP-BRISTOL-MYERS SQUIBB COMPANY-2023-144549

PATIENT
  Age: 62 Year
  Sex: Female

DRUGS (5)
  1. YERVOY [Suspect]
     Active Substance: IPILIMUMAB
     Indication: Renal cell carcinoma
     Dosage: 4 COURSES
     Route: 041
  2. OPDIVO [Suspect]
     Active Substance: NIVOLUMAB
     Indication: Renal cell carcinoma
     Dosage: 4 COURSES
  3. OPDIVO [Suspect]
     Active Substance: NIVOLUMAB
     Dosage: NIVOLUMAB WAS MAINTAINED FOR 4 MONTHS THEREAFTER
  4. CABOZANTINIB [Suspect]
     Active Substance: CABOZANTINIB
     Indication: Renal cell carcinoma
  5. CABOZANTINIB [Suspect]
     Active Substance: CABOZANTINIB
     Dosage: DOSE REDUCTION DUE TO DRUG ERUPTION

REACTIONS (1)
  - Death [Fatal]
